FAERS Safety Report 4639308-3 (Version None)
Quarter: 2005Q2

REPORT INFORMATION
  Report Type: 
  Country: None (occurrence: None)
  Receive Date: 20050418
  Receipt Date: 20050404
  Transmission Date: 20051028
  Serious: Yes (Other)
  Sender: FDA-Public Use
  Company Number: HQWYE636004APR05

PATIENT
  Age: 27 Year
  Sex: Male

DRUGS (8)
  1. ZOSYN [Suspect]
     Indication: STAPHYLOCOCCAL INFECTION
     Dosage: 3.375 G 1X PER 6 HR, INTRAVENOUS
     Route: 042
     Dates: start: 20030511, end: 20030515
  2. AMOXICILLIN AND CLAVULANATE POTASSIUM [Suspect]
     Indication: STAPHYLOCOCCAL INFECTION
     Dosage: 800 MG 1X PER 12 HR, ORAL
     Route: 048
     Dates: start: 20030515, end: 20030517
  3. PERCOCET [Concomitant]
  4. PEPCID [Concomitant]
  5. DEMEROL [Concomitant]
  6. PHENERGAN [Concomitant]
  7. LOVENOX [Concomitant]
  8. LORTAB [Concomitant]

REACTIONS (1)
  - HYPERSENSITIVITY [None]
